FAERS Safety Report 20784796 (Version 1)
Quarter: 2022Q2

REPORT INFORMATION
  Report Type: Spontaneous
  Country: US (occurrence: US)
  Receive Date: 20220504
  Receipt Date: 20220504
  Transmission Date: 20220721
  Serious: No
  Sender: FDA-Public Use
  Company Number: US-PFIZER INC-202101267050

PATIENT
  Age: 67 Year
  Sex: Female
  Weight: 81.65 kg

DRUGS (1)
  1. DOXYCYCLINE HYCLATE [Suspect]
     Active Substance: DOXYCYCLINE HYCLATE
     Dosage: UNK
     Dates: start: 202106

REACTIONS (2)
  - Weight increased [Unknown]
  - Inflammation [Unknown]

NARRATIVE: CASE EVENT DATE: 20210101
